FAERS Safety Report 14716373 (Version 1)
Quarter: 2018Q2

REPORT INFORMATION
  Report Type: Spontaneous
  Country: US (occurrence: US)
  Receive Date: 20180404
  Receipt Date: 20180404
  Transmission Date: 20180711
  Serious: No
  Sender: FDA-Public Use
  Company Number: US-PERRIGO-17US024146

PATIENT
  Age: 47 Year
  Sex: Female
  Weight: 97.52 kg

DRUGS (3)
  1. PSEUDOEPHEDRINE HYDROCHLORIDE. [Suspect]
     Active Substance: PSEUDOEPHEDRINE HYDROCHLORIDE
     Dosage: 120 MG, TWICE WITHIN MINUTES
     Route: 048
     Dates: start: 20170602, end: 20170602
  2. PSEUDOEPHEDRINE HYDROCHLORIDE. [Suspect]
     Active Substance: PSEUDOEPHEDRINE HYDROCHLORIDE
     Dosage: 240 MG, SINGLE
     Route: 048
  3. PSEUDOEPHEDRINE HYDROCHLORIDE. [Suspect]
     Active Substance: PSEUDOEPHEDRINE HYDROCHLORIDE
     Indication: PARANASAL SINUS DISCOMFORT
     Dosage: 120 MG, QD
     Route: 048

REACTIONS (3)
  - Inappropriate schedule of drug administration [Recovered/Resolved]
  - Incorrect dose administered [Recovered/Resolved]
  - Incorrect drug administration duration [Unknown]

NARRATIVE: CASE EVENT DATE: 20170602
